FAERS Safety Report 20616473 (Version 10)
Quarter: 2023Q2

REPORT INFORMATION
  Report Type: Other
  Country: CA (occurrence: None)
  Receive Date: 20220321
  Receipt Date: 20230407
  Transmission Date: 20230721
  Serious: No
  Sender: FDA-Public Use
  Company Number: CA-ROCHE-3048934

PATIENT
  Age: 42 Year
  Sex: Female

DRUGS (5)
  1. OCREVUS [Suspect]
     Active Substance: OCRELIZUMAB
     Indication: Relapsing-remitting multiple sclerosis
     Dosage: 300 MG AT DAY 0 AND 14, THEN 600 MG EVERY 6 MONTH
     Route: 042
     Dates: start: 20210913
  2. OCREVUS [Suspect]
     Active Substance: OCRELIZUMAB
     Route: 042
     Dates: start: 20221021
  3. LYRICA [Suspect]
     Active Substance: PREGABALIN
     Indication: Neuralgia
     Dosage: 25MG ONCE DAILY AT BEDTIME (EVEN IF PRESCRIBED TWICE DAILY).
     Route: 065
     Dates: start: 20220128
  4. ALESSE 28 [Concomitant]
     Active Substance: ETHINYL ESTRADIOL\LEVONORGESTREL
  5. BENADRYL [Concomitant]
     Active Substance: DIPHENHYDRAMINE HYDROCHLORIDE

REACTIONS (11)
  - COVID-19 [Recovered/Resolved]
  - Somnolence [Recovered/Resolved]
  - Dyspnoea [Recovering/Resolving]
  - Vertigo [Not Recovered/Not Resolved]
  - Balance disorder [Unknown]
  - Hypoaesthesia [Unknown]
  - Fatigue [Unknown]
  - Skin infection [Recovered/Resolved]
  - Infusion related reaction [Recovered/Resolved]
  - Dizziness [Unknown]
  - Neuralgia [Recovering/Resolving]

NARRATIVE: CASE EVENT DATE: 20210913
